FAERS Safety Report 14190141 (Version 1)
Quarter: 2017Q4

REPORT INFORMATION
  Report Type: Spontaneous
  Country: US (occurrence: US)
  Receive Date: 20171114
  Receipt Date: 20171114
  Transmission Date: 20180321
  Serious: Yes (Hospitalization)
  Sender: FDA-Public Use
  Company Number: None

PATIENT
  Sex: Male
  Weight: 12.6 kg

DRUGS (3)
  1. MOTRIN [Concomitant]
     Active Substance: IBUPROFEN
  2. TYLENOL [Concomitant]
     Active Substance: ACETAMINOPHEN
  3. TAMIFLU [Suspect]
     Active Substance: OSELTAMIVIR PHOSPHATE
     Indication: INFLUENZA
     Dosage: ?          QUANTITY:1 TEASPOON(S);?TWICE A DAY ORAL
     Route: 048
     Dates: start: 20171113, end: 20171113

REACTIONS (1)
  - Hypothermia [None]

NARRATIVE: CASE EVENT DATE: 20171113
